FAERS Safety Report 5893003-1 (Version None)
Quarter: 2008Q3

REPORT INFORMATION
  Report Type: 
  Country: None (occurrence: None)
  Receive Date: 20080923
  Receipt Date: 20070820
  Transmission Date: 20090109
  Serious: No
  Sender: FDA-Public Use
  Company Number: US-ASTRAZENECA-2007UW11903

PATIENT
  Sex: Female

DRUGS (1)
  1. SEROQUEL [Suspect]
     Route: 048
     Dates: start: 20011101

REACTIONS (4)
  - BACTERIAL INFECTION [None]
  - DIABETES MELLITUS [None]
  - GASTRIC ULCER [None]
  - PAIN IN EXTREMITY [None]
